FAERS Safety Report 5855133-X (Version None)
Quarter: 2008Q3

REPORT INFORMATION
  Report Type: 
  Country: None (occurrence: None)
  Receive Date: 20080822
  Receipt Date: 20080818
  Transmission Date: 20090109
  Serious: Yes (Death, Hospitalization)
  Sender: FDA-Public Use
  Company Number: US-GENENTECH-266592

PATIENT
  Sex: Female

DRUGS (4)
  1. RITUXAN [Suspect]
     Indication: RHEUMATOID ARTHRITIS
     Dosage: 100 MG, UNK
     Route: 042
     Dates: start: 20080711
  2. RITUXAN [Suspect]
     Indication: LUNG DISORDER
  3. OXYGEN @ HOME [Concomitant]
     Indication: DRUG USE FOR UNKNOWN INDICATION
     Dosage: 5 L/MIN, UNK
     Dates: start: 20080601
  4. CPAP [Concomitant]
     Indication: DRUG USE FOR UNKNOWN INDICATION
     Dosage: UNK
     Dates: start: 20080601

REACTIONS (2)
  - DEATH [None]
  - PNEUMONIA [None]
